FAERS Safety Report 22826311 (Version 2)
Quarter: 2023Q4

REPORT INFORMATION
  Report Type: Report from Study
  Country: MX (occurrence: MX)
  Receive Date: 20230816
  Receipt Date: 20231030
  Transmission Date: 20240109
  Serious: Yes (Death, Hospitalization, Disabling, Other)
  Sender: FDA-Public Use
  Company Number: MX-ABBVIE-5365200

PATIENT
  Sex: Female

DRUGS (1)
  1. HUMIRA [Suspect]
     Active Substance: ADALIMUMAB
     Indication: Rheumatoid arthritis
     Dosage: FORM STRENGTH 40 MILLIGRAMS
     Route: 058
     Dates: start: 20160816

REACTIONS (8)
  - Septic shock [Fatal]
  - Haemoglobin decreased [Unknown]
  - Asthenia [Recovering/Resolving]
  - Gastric infection [Unknown]
  - Gait inability [Unknown]
  - Oedematous kidney [Unknown]
  - Urinary tract infection [Unknown]
  - Malaise [Unknown]

NARRATIVE: CASE EVENT DATE: 20230101
